FAERS Safety Report 4490187-7 (Version None)
Quarter: 2004Q4

REPORT INFORMATION
  Report Type: 
  Country: None (occurrence: None)
  Receive Date: 20041027
  Receipt Date: 20041014
  Transmission Date: 20050328
  Serious: Yes (Other)
  Sender: FDA-Public Use
  Company Number: 2004079279

PATIENT
  Sex: Female

DRUGS (5)
  1. DILANTIN KAPSEAL [Suspect]
     Indication: CONVULSION
     Dosage: 300 MG (100 MG, 3 IN 1 D), ORAL
     Route: 048
  2. VALPROATE SEMISODIUM (VALPROATE SEMISODIM) [Concomitant]
  3. CALCIUM (CALCIUM ) [Concomitant]
  4. MULTIVITAMINS (ASCORBIC ACID, ERGOCALCIFEROL, FOLIC ACID, NICOTINAMIDE [Concomitant]
  5. ESTROGENS GONJUGTED  (ESTROGENS CONJUGATED) [Concomitant]

REACTIONS (5)
  - ARTHRALGIA [None]
  - HYSTERECTOMY [None]
  - MYALGIA [None]
  - THYROID NEOPLASM [None]
  - WEIGHT DECREASED [None]
